FAERS Safety Report 23209233 (Version 1)
Quarter: 2023Q4

REPORT INFORMATION
  Report Type: Spontaneous
  Country: US (occurrence: None)
  Receive Date: 20231120
  Receipt Date: 20231120
  Transmission Date: 20240109
  Serious: Yes (Other)
  Sender: FDA-Public Use
  Company Number: None

PATIENT
  Age: 71 Year
  Sex: Female

DRUGS (2)
  1. PRALUENT [Suspect]
     Active Substance: ALIROCUMAB
  2. injection pen [Concomitant]

REACTIONS (2)
  - Cardiac output decreased [None]
  - Cardiac disorder [None]

NARRATIVE: CASE EVENT DATE: 20210101
